FAERS Safety Report 8444191-4 (Version None)
Quarter: 2012Q2

REPORT INFORMATION
  Report Type: 
  Country: None (occurrence: None)
  Receive Date: 20120618
  Receipt Date: 20120606
  Transmission Date: 20120825
  Serious: Yes (Hospitalization)
  Sender: FDA-Public Use
  Company Number: JP-SANOFI-AVENTIS-2012SA038362

PATIENT
  Age: 78 Year
  Sex: Male
  Weight: 74 kg

DRUGS (9)
  1. PLAVIX [Suspect]
     Indication: CEREBRAL INFARCTION
     Route: 048
     Dates: start: 20120513
  2. AMARYL [Concomitant]
     Indication: DIABETES MELLITUS
     Dosage: FREQUENCY:QD OR BID
     Route: 048
  3. METFORMIN HYDROCHLORIDE [Concomitant]
     Indication: DIABETES MELLITUS
     Route: 048
     Dates: end: 20120604
  4. RADICUT [Concomitant]
     Indication: CEREBRAL INFARCTION
     Route: 041
     Dates: start: 20120512, end: 20120519
  5. ARGATROBAN [Concomitant]
     Indication: CEREBRAL INFARCTION
     Route: 041
     Dates: start: 20120512, end: 20120519
  6. CANDESARTAN CILEXETIL [Suspect]
     Indication: HYPERTENSION
     Route: 048
     Dates: start: 20120519, end: 20120525
  7. PRAVASTATIN [Concomitant]
     Indication: HYPERLIPIDAEMIA
     Route: 048
     Dates: start: 20120519
  8. VOGLIBOSE [Concomitant]
  9. MAGNESIUM OXIDE [Concomitant]

REACTIONS (1)
  - HYPONATRAEMIA [None]
